FAERS Safety Report 15758398 (Version 1)
Quarter: 2018Q4

REPORT INFORMATION
  Report Type: Report from Study
  Country: None (occurrence: US)
  Receive Date: 20181225
  Receipt Date: 20181225
  Transmission Date: 20190205
  Serious: Yes (Other)
  Sender: FDA-Public Use
  Company Number: US-ABBVIE-18S-163-2601121-00

PATIENT
  Sex: Male

DRUGS (2)
  1. DUOPA [Suspect]
     Active Substance: CARBIDOPA\LEVODOPA
     Indication: PRODUCT USED FOR UNKNOWN INDICATION
     Dosage: TWO CASSETTE PER DAY
     Route: 050
     Dates: start: 20161230
  2. DUOPA [Suspect]
     Active Substance: CARBIDOPA\LEVODOPA
     Dosage: ONE CASSETTE PER DAY
     Route: 050
     Dates: start: 20161230

REACTIONS (3)
  - Mobility decreased [Unknown]
  - Therapy change [Unknown]
  - Spinal operation [Unknown]
